FAERS Safety Report 14995927 (Version 1)
Quarter: 2018Q2

REPORT INFORMATION
  Report Type: Spontaneous
  Country: US (occurrence: US)
  Receive Date: 20180611
  Receipt Date: 20180611
  Transmission Date: 20180711
  Serious: Yes (Hospitalization, Other)
  Sender: FDA-Public Use
  Company Number: US-IMPAX LABORATORIES, INC-2018-IPXL-01967

PATIENT
  Age: 39 Year
  Sex: Female

DRUGS (4)
  1. DOXYCYCLINE HYCLATE DELAYED RELEASE [Suspect]
     Active Substance: DOXYCYCLINE HYCLATE
     Indication: CEREBRAL MALARIA
     Dosage: UNK
     Route: 042
  2. QUINIDINE [Suspect]
     Active Substance: QUINIDINE
     Indication: CEREBRAL MALARIA
     Dosage: UNK
     Route: 042
  3. DOXYCYCLINE HYCLATE DELAYED RELEASE [Suspect]
     Active Substance: DOXYCYCLINE HYCLATE
     Indication: PLASMODIUM FALCIPARUM INFECTION
  4. QUINIDINE [Suspect]
     Active Substance: QUINIDINE
     Indication: PLASMODIUM FALCIPARUM INFECTION

REACTIONS (7)
  - Depressed level of consciousness [Recovered/Resolved]
  - Hippocampal sclerosis [Unknown]
  - Thrombocytopenia [Unknown]
  - Renal failure [Recovered/Resolved]
  - Haemolytic anaemia [Unknown]
  - Dyskinesia [Recovered/Resolved]
  - Memory impairment [Not Recovered/Not Resolved]
